FAERS Safety Report 5474944-6 (Version None)
Quarter: 2007Q3

REPORT INFORMATION
  Report Type: 
  Country: None (occurrence: None)
  Receive Date: 20070831
  Receipt Date: 20070510
  Transmission Date: 20080115
  Serious: No
  Sender: FDA-Public Use
  Company Number: 241298

PATIENT
  Age: 76 Year
  Sex: Female

DRUGS (6)
  1. LUCENTIS [Suspect]
     Indication: MACULAR DEGENERATION
     Dosage: 1/MONTH, INTRAVITREAL
     Dates: start: 20070216
  2. NORVASC [Concomitant]
  3. DIOVAN [Concomitant]
  4. PLAVIX [Concomitant]
  5. SINGULAIR [Concomitant]
  6. ADVAIR DISKUS 100/50 [Concomitant]

REACTIONS (2)
  - EPISTAXIS [None]
  - HYPERTENSION [None]
